FAERS Safety Report 7051238-9 (Version None)
Quarter: 2010Q4

REPORT INFORMATION
  Report Type: 
  Country: None (occurrence: None)
  Receive Date: 20101019
  Receipt Date: 20100430
  Transmission Date: 20110411
  Serious: Yes (Death)
  Sender: FDA-Public Use
  Company Number: FR-CELGENEUS-056-50794-10072043

PATIENT
  Age: 85 Year
  Sex: Male

DRUGS (2)
  1. VIDAZA [Suspect]
     Route: 065
     Dates: start: 20090901, end: 20091001
  2. EPO [Concomitant]
     Indication: PRODUCT USED FOR UNKNOWN INDICATION
     Route: 065

REACTIONS (1)
  - DEATH [None]
